FAERS Safety Report 14236393 (Version 1)
Quarter: 2017Q4

REPORT INFORMATION
  Report Type: Spontaneous
  Country: US (occurrence: US)
  Receive Date: 20171129
  Receipt Date: 20171129
  Transmission Date: 20180321
  Serious: No
  Sender: FDA-Public Use
  Company Number: US-BAYER-2017-218577

PATIENT
  Age: 52 Year
  Sex: Male

DRUGS (2)
  1. HELIXATE FS [Suspect]
     Active Substance: ANTIHEMOPHILIC FACTOR, HUMAN RECOMBINANT
     Indication: FACTOR VIII DEFICIENCY
     Dosage: 3580 U, TIW
     Route: 042
     Dates: start: 20170801
  2. HELIXATE FS [Suspect]
     Active Substance: ANTIHEMOPHILIC FACTOR, HUMAN RECOMBINANT
     Indication: FACTOR VIII DEFICIENCY
     Dosage: 316 U, TIW
     Route: 042
     Dates: start: 20170928

REACTIONS (1)
  - Pruritus [None]

NARRATIVE: CASE EVENT DATE: 20171107
